FAERS Safety Report 9175388 (Version 1)
Quarter: 2013Q1

REPORT INFORMATION
  Report Type: Report from Study
  Country: US (occurrence: US)
  Receive Date: 20130320
  Receipt Date: 20130320
  Transmission Date: 20140127
  Serious: Yes (Other)
  Sender: FDA-Public Use
  Company Number: US-ROCHE-1203771

PATIENT
  Sex: 0

DRUGS (2)
  1. BEVACIZUMAB [Suspect]
     Indication: MALIGNANT GLIOMA
     Route: 065
  2. RILOTUMUMAB [Suspect]
     Indication: MALIGNANT GLIOMA
     Route: 065

REACTIONS (2)
  - Hypotension [Unknown]
  - Electrocardiogram QT prolonged [Unknown]
